FAERS Safety Report 14685780 (Version 1)
Quarter: 2018Q1

REPORT INFORMATION
  Report Type: Spontaneous
  Country: EE (occurrence: EE)
  Receive Date: 20180326
  Receipt Date: 20180326
  Transmission Date: 20180509
  Serious: Yes (Disabling)
  Sender: FDA-Public Use
  Company Number: None

PATIENT
  Age: 24 Year
  Sex: Female
  Weight: 97 kg

DRUGS (2)
  1. IBUPROFEN. [Suspect]
     Active Substance: IBUPROFEN
  2. MEFLOQUINE (GENERIC, DISPENSED INTO A PILL BOTTLE) [Suspect]
     Active Substance: MEFLOQUINE
     Indication: MALARIA PROPHYLAXIS
     Dosage: ?          QUANTITY:1 TABLET(S);OTHER FREQUENCY:ONCE WEEKLY;?
     Route: 048
     Dates: start: 20120801, end: 20130226

REACTIONS (11)
  - Affective disorder [None]
  - Nightmare [None]
  - Irritability [None]
  - Headache [None]
  - Dizziness [None]
  - Labyrinthitis [None]
  - Anger [None]
  - Vertigo [None]
  - Balance disorder [None]
  - Anxiety [None]
  - Nausea [None]

NARRATIVE: CASE EVENT DATE: 20160225
